FAERS Safety Report 10028241 (Version 1)
Quarter: 2014Q1

REPORT INFORMATION
  Report Type: Spontaneous
  Country: DE (occurrence: DE)
  Receive Date: 20140321
  Receipt Date: 20140321
  Transmission Date: 20141002
  Serious: Yes (Other)
  Sender: FDA-Public Use
  Company Number: DE-ACTAVIS-2014-05095

PATIENT
  Age: 42 Year
  Sex: Female

DRUGS (2)
  1. EPIRUBICIN (UNKNOWN) [Suspect]
     Indication: BREAST CANCER
     Dosage: 4 X 175 MG
     Route: 042
  2. PACLITAXEL (UNKNOWN) [Suspect]
     Indication: BREAST CANCER
     Dosage: 7 X 1092 MG
     Route: 042

REACTIONS (3)
  - Atrioventricular block [Unknown]
  - Dizziness [Unknown]
  - Asthenia [Unknown]
